FAERS Safety Report 21513936 (Version 2)
Quarter: 2022Q4

REPORT INFORMATION
  Report Type: Report from Study
  Country: US (occurrence: US)
  Receive Date: 20221027
  Receipt Date: 20221205
  Transmission Date: 20230113
  Serious: Yes (Death)
  Sender: FDA-Public Use
  Company Number: US-UCBSA-2022061500

PATIENT
  Sex: Female
  Weight: 120 kg

DRUGS (1)
  1. LACOSAMIDE [Suspect]
     Active Substance: LACOSAMIDE
     Indication: Seizure
     Dosage: 200 MILLIGRAM, 2X/DAY (BID)
     Route: 048
     Dates: start: 2014, end: 20221007

REACTIONS (2)
  - Dementia [Fatal]
  - Malnutrition [Fatal]

NARRATIVE: CASE EVENT DATE: 20160101
